FAERS Safety Report 8346409-5 (Version None)
Quarter: 2012Q2

REPORT INFORMATION
  Report Type: 
  Country: None (occurrence: None)
  Receive Date: 20120509
  Receipt Date: 20120427
  Transmission Date: 20120825
  Serious: Yes (Hospitalization)
  Sender: FDA-Public Use
  Company Number: DE-BRISTOL-MYERS SQUIBB COMPANY-16574576

PATIENT
  Age: 64 Year
  Sex: Female
  Weight: 57 kg

DRUGS (3)
  1. FLUOROURACIL [Suspect]
     Indication: HEAD AND NECK CANCER METASTATIC
     Dosage: RECENT INF 25-APR-2012
     Dates: start: 20120421
  2. CETUXIMAB [Suspect]
     Indication: HEAD AND NECK CANCER METASTATIC
     Dates: start: 20120420
  3. CISPLATIN [Suspect]
     Indication: HEAD AND NECK CANCER METASTATIC
     Dates: start: 20120421

REACTIONS (2)
  - SYNCOPE [None]
  - DEHYDRATION [None]
